FAERS Safety Report 21298088 (Version 1)
Quarter: 2022Q3

REPORT INFORMATION
  Report Type: Report from Study
  Country: US (occurrence: US)
  Receive Date: 20220906
  Receipt Date: 20220906
  Transmission Date: 20221027
  Serious: Yes (Hospitalization)
  Sender: FDA-Public Use
  Company Number: US-BIOVITRUM-2022US02471

PATIENT
  Age: 21 Year
  Sex: Female

DRUGS (3)
  1. KINERET [Suspect]
     Active Substance: ANAKINRA
     Indication: Rheumatoid arthritis
     Dates: start: 20220208
  2. KINERET [Suspect]
     Active Substance: ANAKINRA
     Dates: start: 202202
  3. KINERET [Suspect]
     Active Substance: ANAKINRA
     Dates: start: 20220202

REACTIONS (11)
  - Weight decreased [Unknown]
  - Malnutrition [Not Recovered/Not Resolved]
  - Joint swelling [Not Recovered/Not Resolved]
  - Injection site pain [Unknown]
  - Injection site nodule [Unknown]
  - Feeding tube user [Unknown]
  - Complication associated with device [Unknown]
  - Product dose omission in error [Unknown]
  - Product dose omission issue [Unknown]
  - Drug ineffective [Unknown]
  - Off label use [Unknown]

NARRATIVE: CASE EVENT DATE: 20220201
